FAERS Safety Report 20200777 (Version 3)
Quarter: 2022Q1

REPORT INFORMATION
  Report Type: Spontaneous
  Country: US (occurrence: US)
  Receive Date: 20211217
  Receipt Date: 20220303
  Transmission Date: 20220423
  Serious: Yes (Death, Hospitalization, Other)
  Sender: FDA-Public Use
  Company Number: US-JNJFOC-20211227324

PATIENT
  Age: 74 Year
  Sex: Female
  Weight: 74.002 kg

DRUGS (4)
  1. XARELTO [Suspect]
     Active Substance: RIVAROXABAN
     Indication: Thrombosis
     Route: 048
     Dates: start: 20211130
  2. XARELTO [Suspect]
     Active Substance: RIVAROXABAN
     Indication: Peripheral swelling
     Route: 048
     Dates: start: 202112
  3. LEVEMIR [Concomitant]
     Active Substance: INSULIN DETEMIR
     Indication: Diabetes mellitus
  4. ROSUVASTATIN [Concomitant]
     Active Substance: ROSUVASTATIN
     Indication: Blood cholesterol
     Route: 065

REACTIONS (4)
  - Haemorrhagic stroke [Fatal]
  - Coma [Unknown]
  - Cerebrovascular accident [Unknown]
  - Fall [Unknown]

NARRATIVE: CASE EVENT DATE: 20211209
